FAERS Safety Report 18234018 (Version 1)
Quarter: 2020Q3

REPORT INFORMATION
  Report Type: Spontaneous
  Country: ML (occurrence: ML)
  Receive Date: 20200904
  Receipt Date: 20200904
  Transmission Date: 20201103
  Serious: Yes (Life-Threatening, Other)
  Sender: FDA-Public Use
  Company Number: NVSC2020ML243432

PATIENT
  Age: 41 Year
  Sex: Female

DRUGS (1)
  1. COARTEM [Suspect]
     Active Substance: ARTEMETHER\LUMEFANTRINE
     Indication: MALARIA
     Dosage: 1 DF, BID
     Route: 048
     Dates: start: 20200605

REACTIONS (2)
  - Maternal exposure during pregnancy [Unknown]
  - Abortion [Not Recovered/Not Resolved]

NARRATIVE: CASE EVENT DATE: 20200628
